FAERS Safety Report 22075173 (Version 1)
Quarter: 2023Q1

REPORT INFORMATION
  Report Type: Spontaneous
  Country: US (occurrence: None)
  Receive Date: 20230308
  Receipt Date: 20230308
  Transmission Date: 20230418
  Serious: Yes (Other)
  Sender: FDA-Public Use
  Company Number: None

PATIENT
  Age: 51 Year
  Sex: Female
  Weight: 76.5 kg

DRUGS (10)
  1. ESTRADIOL [Suspect]
     Active Substance: ESTRADIOL
     Indication: Hot flush
     Dosage: OTHER QUANTITY : 90 TABLET(S);?FREQUENCY : DAILY;?
     Route: 048
     Dates: start: 20220928, end: 20221007
  2. Hearing aids [Concomitant]
  3. METOPROLOL [Concomitant]
     Active Substance: METOPROLOL
  4. WELLBUTRIN [Concomitant]
     Active Substance: BUPROPION HYDROCHLORIDE
  5. Multivitamin patch, b12 [Concomitant]
  6. CALCIUM [Concomitant]
     Active Substance: CALCIUM
  7. ZINC [Concomitant]
     Active Substance: ZINC
  8. VITAMIN D3 [Concomitant]
     Active Substance: CHOLECALCIFEROL
  9. Seasonal allergy pill [Concomitant]
  10. TYLENOL [Concomitant]
     Active Substance: ACETAMINOPHEN

REACTIONS (4)
  - Vulvovaginal pain [None]
  - Vulvovaginal discomfort [None]
  - Urinary tract pain [None]
  - Bone pain [None]

NARRATIVE: CASE EVENT DATE: 20221007
